FAERS Safety Report 12701887 (Version 1)
Quarter: 2016Q3

REPORT INFORMATION
  Report Type: Spontaneous
  Country: US (occurrence: US)
  Receive Date: 20160831
  Receipt Date: 20160831
  Transmission Date: 20161109
  Serious: No
  Sender: FDA-Public Use
  Company Number: US-JAZZ-2016-US-007674

PATIENT
  Age: 31 Year
  Sex: Female

DRUGS (14)
  1. NUVIGIL [Concomitant]
     Active Substance: ARMODAFINIL
  2. SERTRALINE HCL [Concomitant]
     Active Substance: SERTRALINE HYDROCHLORIDE
  3. MIRALAX [Concomitant]
     Active Substance: POLYETHYLENE GLYCOL 3350
  4. TYLENOL [Concomitant]
     Active Substance: ACETAMINOPHEN
  5. CYCLOBENZAPRINE [Concomitant]
     Active Substance: CYCLOBENZAPRINE
  6. VITAMIN D3 [Concomitant]
     Active Substance: CHOLECALCIFEROL
  7. XYREM [Suspect]
     Active Substance: SODIUM OXYBATE
     Indication: NARCOLEPSY
     Dosage: 2.25 G, BID
     Route: 048
     Dates: start: 201604
  8. XYREM [Suspect]
     Active Substance: SODIUM OXYBATE
     Indication: CATAPLEXY
  9. NAPROXEN SODIUM. [Concomitant]
     Active Substance: NAPROXEN SODIUM
  10. MODAFINIL. [Concomitant]
     Active Substance: MODAFINIL
  11. SPIRONOLACTONE. [Concomitant]
     Active Substance: SPIRONOLACTONE
  12. PROBIOTIC [Concomitant]
     Active Substance: PROBIOTICS NOS
  13. METFORMIN HYDROCHLORIDE. [Concomitant]
     Active Substance: METFORMIN HYDROCHLORIDE
  14. OMEPRAZOLE DR [Concomitant]
     Active Substance: OMEPRAZOLE

REACTIONS (2)
  - Euphoric mood [Unknown]
  - Anxiety [Unknown]

NARRATIVE: CASE EVENT DATE: 201604
